FAERS Safety Report 19953930 (Version 1)
Quarter: 2021Q4

REPORT INFORMATION
  Report Type: Spontaneous
  Country: US (occurrence: US)
  Receive Date: 20211014
  Receipt Date: 20211014
  Transmission Date: 20220303
  Serious: Yes (Hospitalization)
  Sender: FDA-Public Use
  Company Number: None

PATIENT
  Age: 66 Year
  Sex: Male
  Weight: 33.89 kg

DRUGS (10)
  1. REGEN-COV [Suspect]
     Active Substance: CASIRIVIMAB\IMDEVIMAB
     Indication: COVID-19
     Dosage: ?          OTHER FREQUENCY:ONCE;
     Route: 040
     Dates: start: 20211005, end: 20211005
  2. CARVEDILOL [Concomitant]
     Active Substance: CARVEDILOL
  3. CLONIDINE [Concomitant]
     Active Substance: CLONIDINE
  4. DULAGLUTIDE [Concomitant]
     Active Substance: DULAGLUTIDE
  5. GLIPIZIDE [Concomitant]
     Active Substance: GLIPIZIDE
  6. LYRICA [Concomitant]
     Active Substance: PREGABALIN
  7. Magox 400 mg [Concomitant]
  8. PROTONIX [Concomitant]
     Active Substance: PANTOPRAZOLE SODIUM
  9. ROSUVASTATIN [Concomitant]
     Active Substance: ROSUVASTATIN
  10. monteleukast 10 mg [Concomitant]

REACTIONS (4)
  - Hypotension [None]
  - Somnolence [None]
  - Blood creatinine increased [None]
  - Blood sodium decreased [None]

NARRATIVE: CASE EVENT DATE: 20211005
